FAERS Safety Report 17941486 (Version 1)
Quarter: 2020Q2

REPORT INFORMATION
  Report Type: Spontaneous
  Country: JP (occurrence: JP)
  Receive Date: 20200624
  Receipt Date: 20200624
  Transmission Date: 20200714
  Serious: Yes (Other)
  Sender: FDA-Public Use
  Company Number: JP-ANIPHARMA-2020-JP-000191

PATIENT
  Age: 57 Year
  Sex: Female
  Weight: 49 kg

DRUGS (6)
  1. PREDNISOLONE. [Suspect]
     Active Substance: PREDNISOLONE
     Indication: OPTIC NEURITIS
     Dosage: 30 MG DAILY
     Route: 048
  2. ISULIN GLARGINE [Concomitant]
     Dosage: 36 UNITS DAILY
  3. METFORMIN [Concomitant]
     Active Substance: METFORMIN HYDROCHLORIDE
     Dosage: 500 MG DAILY
  4. SULFAMETHOXAZOLE + TRIMETHOPRIM (NON-SPECIFIC) [Suspect]
     Active Substance: SULFAMETHOXAZOLE\TRIMETHOPRIM
     Indication: INFECTION PROPHYLAXIS
     Dosage: 800 MG AND 160 MG DAILY
  5. TELMISARTAN. [Suspect]
     Active Substance: TELMISARTAN
     Indication: HYPERTENSION
     Dosage: 40 MG DAILY
  6. ANAGLIPTIN [Concomitant]
     Active Substance: ANAGLIPTIN
     Dosage: 200 MG DAILY

REACTIONS (3)
  - Hyperkalaemia [Unknown]
  - Renal tubular acidosis [Unknown]
  - Hyponatraemia [Unknown]
